FAERS Safety Report 14174169 (Version 2)
Quarter: 2017Q4

REPORT INFORMATION
  Report Type: Spontaneous
  Country: GB (occurrence: GB)
  Receive Date: 20171109
  Receipt Date: 20171122
  Transmission Date: 20180321
  Serious: Yes (Other)
  Sender: FDA-Public Use
  Company Number: GB-PFIZER INC-2017475073

PATIENT
  Age: 64 Year
  Sex: Female
  Weight: 76.2 kg

DRUGS (26)
  1. CARBOCISTEINE [Concomitant]
     Active Substance: CARBOCYSTEINE
     Dosage: 10 ML, 3X/DAY (250MG/5ML)
     Route: 048
     Dates: start: 20170724
  2. LOPERAMIDE [Concomitant]
     Active Substance: LOPERAMIDE
     Dosage: 2 MG, UNK (START WITH ONE A DAY OR INCREASE SLOWLY UP TO 4 A DAY)
     Dates: start: 20170829
  3. PARACETAMOL [Concomitant]
     Active Substance: ACETAMINOPHEN
     Indication: PAIN
     Dosage: 1000 MG, 4X/DAY
     Dates: start: 20170829, end: 20171019
  4. TIOTROPIUM BROMIDE [Concomitant]
     Active Substance: TIOTROPIUM BROMIDE
     Dosage: 1 DF, 1X/DAY (18MICROGRAM)
     Route: 055
     Dates: start: 20170724
  5. GABAPENTIN. [Concomitant]
     Active Substance: GABAPENTIN
     Indication: PAIN
     Dosage: 1 DF, 3X/DAY
     Dates: start: 20170821
  6. ADIZEM [Concomitant]
     Active Substance: DILTIAZEM HYDROCHLORIDE
     Dosage: 200 MG, 1X/DAY
     Dates: start: 20170724
  7. GLANDOSANE [Concomitant]
     Indication: DRY MOUTH
     Dosage: UNK UNK, AS NEEDED
     Route: 048
     Dates: start: 20170204
  8. SIMVASTATIN. [Concomitant]
     Active Substance: SIMVASTATIN
     Dosage: 20 MG, 1X/DAY (AT NIGHT)
     Dates: start: 20170724
  9. TRAMADOL. [Concomitant]
     Active Substance: TRAMADOL
     Dosage: 50 MG, AS NEEDED (ONE  DAILY)
     Dates: start: 20171024
  10. ASPIRIN (E.C.) [Concomitant]
     Active Substance: ASPIRIN
     Dosage: 75 MG, 1X/DAY (AFTER FOOD)
     Dates: start: 20170724
  11. MONTELUKAST [Concomitant]
     Active Substance: MONTELUKAST SODIUM
     Dosage: 10 MG, 1X/DAY (AT NIGHT)
     Dates: start: 20170724
  12. CALCIUM CARBONATE. [Concomitant]
     Active Substance: CALCIUM CARBONATE
     Dosage: 1.5 G, 2X/DAY
     Dates: start: 20170724
  13. FOSTAIR [Concomitant]
     Active Substance: BECLOMETHASONE\FORMOTEROL
     Dosage: 2 DF, 2X/DAY (200MICROGRAMS/DOSE / 6MICROGRAMS/DOSE)
     Route: 055
     Dates: start: 20171018
  14. GLYCERYL TRINITRATE [Concomitant]
     Active Substance: NITROGLYCERIN
     Indication: CHEST PAIN
     Dosage: 1 DF, UNK (400MICROGRAMS/DOSE)
     Route: 060
     Dates: start: 20170418
  15. LAXIDO [Concomitant]
     Active Substance: POLYETHYLENE GLYCOL 3350\POTASSIUM CHLORIDE\SODIUM BICARBONATE\SODIUM CHLORIDE
     Indication: CONSTIPATION
     Dosage: 1 DF, UNK (DAILY OR TWICE A DAY)
     Route: 048
     Dates: start: 20170821
  16. MIRTAZAPINE. [Concomitant]
     Active Substance: MIRTAZAPINE
     Dosage: 15 MG, 1X/DAY (AT NIGHT)
     Dates: start: 20170724
  17. OMEPRAZOLE. [Concomitant]
     Active Substance: OMEPRAZOLE
     Dosage: 20 MG, 2X/DAY
     Dates: start: 20170724
  18. COLECALCIFEROL [Concomitant]
     Active Substance: CHOLECALCIFEROL
     Dosage: 400 IU, 2X/DAY
     Dates: start: 20170724
  19. DULOXETINE. [Concomitant]
     Active Substance: DULOXETINE
     Dosage: 60 MG, 1X/DAY
     Dates: start: 20170724
  20. ISOSORBIDE MONONITRATE. [Concomitant]
     Active Substance: ISOSORBIDE MONONITRATE
     Dosage: 60 MG, 1X/DAY
     Dates: start: 20170724
  21. SUDOCREM [Concomitant]
     Dosage: UNK (APPLY VERY FREQUENTLY)
     Dates: start: 20170829
  22. UNIPHYLLIN CONTINUS [Concomitant]
     Active Substance: THEOPHYLLINE ANHYDROUS
     Dosage: 300 MG, 2X/DAY
     Dates: start: 20170907, end: 20171002
  23. PREGABALIN. [Suspect]
     Active Substance: PREGABALIN
     Indication: ANALGESIC THERAPY
     Dosage: 25 MG, UNK
     Dates: start: 20171017, end: 20171019
  24. DIAZEPAM. [Concomitant]
     Active Substance: DIAZEPAM
     Dosage: 1 DF, 3X/DAY
     Dates: start: 20170724
  25. SALBUTAMOL [Concomitant]
     Active Substance: ALBUTEROL
     Indication: WHEEZING
     Dosage: 2 DF, AS NEEDED (UP TO 4 HOURLY IF REQUIRED FOR WHEEZE  OR AS DIRECTED BY ASTHMA OR COPD ACTION PLAN
     Route: 055
     Dates: start: 20170724
  26. TRIMETHOPRIM. [Concomitant]
     Active Substance: TRIMETHOPRIM
     Dosage: 200 MG, 2X/DAY
     Dates: start: 20171020

REACTIONS (4)
  - Dizziness [Unknown]
  - Dyspnoea [Recovered/Resolved]
  - Asthma [Recovered/Resolved]
  - Pruritus [Unknown]

NARRATIVE: CASE EVENT DATE: 20171017
